FAERS Safety Report 7077301-4 (Version None)
Quarter: 2010Q4

REPORT INFORMATION
  Report Type: 
  Country: None (occurrence: None)
  Receive Date: 20101101
  Receipt Date: 20101019
  Transmission Date: 20110411
  Serious: Yes (Other)
  Sender: FDA-Public Use
  Company Number: US-ELI_LILLY_AND_COMPANY-US201010005240

PATIENT
  Age: 67 Year
  Sex: Female

DRUGS (1)
  1. FORTEO [Suspect]
     Indication: OSTEOPOROSIS
     Dosage: UNK, UNKNOWN
     Route: 065

REACTIONS (7)
  - CATARACT [None]
  - DIABETES MELLITUS [None]
  - FEELING HOT [None]
  - LETHARGY [None]
  - MEMORY IMPAIRMENT [None]
  - VERTEBROPLASTY [None]
  - VISION BLURRED [None]
